FAERS Safety Report 19867644 (Version 1)
Quarter: 2021Q3

REPORT INFORMATION
  Report Type: Spontaneous
  Country: US (occurrence: US)
  Receive Date: 20210921
  Receipt Date: 20210921
  Transmission Date: 20211014
  Serious: Yes (Other)
  Sender: FDA-Public Use
  Company Number: US-ELI_LILLY_AND_COMPANY-US202109004467

PATIENT

DRUGS (4)
  1. BASAGLAR [Suspect]
     Active Substance: INSULIN GLARGINE
     Indication: TYPE 2 DIABETES MELLITUS
     Dosage: 30 U, DAILY (NIGHT)
     Route: 058
  2. BASAGLAR [Suspect]
     Active Substance: INSULIN GLARGINE
     Dosage: 30 U, DAILY(NIGHT)
     Route: 058
  3. BASAGLAR [Suspect]
     Active Substance: INSULIN GLARGINE
     Indication: TYPE 2 DIABETES MELLITUS
     Dosage: 30 U, DAILY (NIGHT)
     Route: 058
  4. BASAGLAR [Suspect]
     Active Substance: INSULIN GLARGINE
     Dosage: 30 U, DAILY(NIGHT)
     Route: 058

REACTIONS (9)
  - Injection site haemorrhage [Unknown]
  - Injection site bruising [Recovering/Resolving]
  - Tendon rupture [Recovering/Resolving]
  - Road traffic accident [Recovering/Resolving]
  - Thermal burn [Unknown]
  - Nerve compression [Unknown]
  - Pain in extremity [Unknown]
  - Electric shock sensation [Unknown]
  - Scratch [Recovering/Resolving]
